FAERS Safety Report 15608892 (Version 1)
Quarter: 2018Q4

REPORT INFORMATION
  Report Type: Report from Study
  Country: JP (occurrence: JP)
  Receive Date: 20181112
  Receipt Date: 20181112
  Transmission Date: 20190205
  Serious: Yes (Hospitalization)
  Sender: FDA-Public Use
  Company Number: JP-SA-2018SA310643

PATIENT
  Age: 45 Year
  Sex: Male

DRUGS (2)
  1. DARBEPOETIN ALFA RECOMBINANT [Suspect]
     Active Substance: DARBEPOETIN ALFA
     Indication: PRODUCT USED FOR UNKNOWN INDICATION
     Dosage: UNK
     Route: 042
     Dates: start: 20140926, end: 20170412
  2. SEVELAMER HYDROCHLORIDE. [Suspect]
     Active Substance: SEVELAMER HYDROCHLORIDE
     Indication: PRODUCT USED FOR UNKNOWN INDICATION
     Dosage: UNK
     Route: 048
     Dates: start: 20120305, end: 20180212

REACTIONS (1)
  - Renal cyst haemorrhage [Recovering/Resolving]

NARRATIVE: CASE EVENT DATE: 20160809
